FAERS Safety Report 6086609-0 (Version None)
Quarter: 2009Q1

REPORT INFORMATION
  Report Type: 
  Country: None (occurrence: None)
  Receive Date: 20090223
  Receipt Date: 20090210
  Transmission Date: 20090719
  Serious: Yes (Other)
  Sender: FDA-Public Use
  Company Number: AU-PFIZER INC-2009171139

PATIENT

DRUGS (7)
  1. CHAMPIX [Suspect]
     Dosage: UNK
     Dates: start: 20081016, end: 20090209
  2. DOXYCYCLINE [Concomitant]
     Dosage: UNK
  3. SYMBICORT [Concomitant]
     Dosage: UNK
  4. BRICANYL [Concomitant]
     Dosage: UNK
  5. CRESTOR [Concomitant]
     Dosage: UNK
  6. SOMAC [Concomitant]
     Dosage: UNK
  7. DRUG, UNSPECIFIED [Concomitant]
     Dosage: UNK

REACTIONS (3)
  - DRY MOUTH [None]
  - NASAL NEOPLASM [None]
  - PRURITUS [None]
